FAERS Safety Report 6748526-X (Version None)
Quarter: 2010Q2

REPORT INFORMATION
  Report Type: 
  Country: None (occurrence: None)
  Receive Date: 20100601
  Receipt Date: 20100520
  Transmission Date: 20101027
  Serious: Yes (Other)
  Sender: FDA-Public Use
  Company Number: US-CELGENEUS-163-20785-10032582

PATIENT
  Sex: Male

DRUGS (5)
  1. THALOMID [Suspect]
     Route: 048
     Dates: start: 20050401
  2. THALOMID [Suspect]
     Route: 048
     Dates: start: 20041201, end: 20050401
  3. THALOMID [Suspect]
     Dosage: 200MG-150MG-100MG
     Route: 048
     Dates: start: 20031001, end: 20041201
  4. AREDIA [Concomitant]
     Indication: DRUG USE FOR UNKNOWN INDICATION
     Route: 065
     Dates: start: 20050101
  5. AREDIA [Concomitant]
     Route: 051
     Dates: start: 20060101

REACTIONS (5)
  - CONSTIPATION [None]
  - DRY SKIN [None]
  - NEUROPATHY PERIPHERAL [None]
  - PROSTATE CANCER [None]
  - SOMNOLENCE [None]
